FAERS Safety Report 17585535 (Version 1)
Quarter: 2020Q1

REPORT INFORMATION
  Report Type: Spontaneous
  Country: US (occurrence: US)
  Receive Date: 20200324
  Receipt Date: 20200324
  Transmission Date: 20200409
  Serious: Yes (Other)
  Sender: FDA-Public Use
  Company Number: None

PATIENT
  Sex: Female

DRUGS (2)
  1. TALTZ [Suspect]
     Active Substance: IXEKIZUMAB
     Indication: PSORIASIS
     Dosage: INITIAL LOADING DOSE
     Route: 058
     Dates: start: 20200317, end: 20200317
  2. TALTZ [Suspect]
     Active Substance: IXEKIZUMAB
     Indication: PSORIATIC ARTHROPATHY
     Dosage: INITIAL LOADING DOSE
     Route: 058
     Dates: start: 20200317, end: 20200317

REACTIONS (4)
  - Muscle strain [None]
  - Lymphadenopathy [None]
  - Pharyngeal swelling [None]
  - Swollen tongue [None]
